FAERS Safety Report 5866186-7 (Version None)
Quarter: 2008Q3

REPORT INFORMATION
  Report Type: 
  Country: None (occurrence: None)
  Receive Date: 20080829
  Receipt Date: 20080819
  Transmission Date: 20090109
  Serious: Yes (Death, Other)
  Sender: FDA-Public Use
  Company Number: DE-MERCK-0808DEU00075

PATIENT
  Age: 62 Year
  Sex: Male

DRUGS (1)
  1. PRIMAXIN [Suspect]
     Route: 042
     Dates: end: 20080801

REACTIONS (5)
  - CHOLECYSTITIS ACUTE [None]
  - COAGULOPATHY [None]
  - HEPATIC FAILURE [None]
  - ISCHAEMIA [None]
  - SEPSIS [None]
